FAERS Safety Report 15291429 (Version 2)
Quarter: 2018Q3

REPORT INFORMATION
  Report Type: Spontaneous
  Country: US (occurrence: US)
  Receive Date: 20180817
  Receipt Date: 20180822
  Transmission Date: 20181010
  Serious: Yes (Other)
  Sender: FDA-Public Use
  Company Number: US-PFIZER INC-2018329328

PATIENT
  Age: 60 Year
  Sex: Female
  Weight: 52.15 kg

DRUGS (4)
  1. ATORVASTATIN CALCIUM. [Suspect]
     Active Substance: ATORVASTATIN CALCIUM
     Dosage: 160 MG, 1X/DAY
     Route: 048
  2. ATORVASTATIN CALCIUM. [Suspect]
     Active Substance: ATORVASTATIN CALCIUM
     Indication: BLOOD CHOLESTEROL INCREASED
     Dosage: 40 MG, UNK
  3. IBUPROFEN. [Concomitant]
     Active Substance: IBUPROFEN
     Indication: PAIN
     Dosage: 800 MG, AS NEEDED
     Route: 048
  4. ATORVASTATIN CALCIUM. [Suspect]
     Active Substance: ATORVASTATIN CALCIUM
     Dosage: 80 MG, DAILY (2 A NIGHT)

REACTIONS (13)
  - Muscular weakness [Unknown]
  - Malaise [Unknown]
  - Multiple sclerosis [Unknown]
  - Nervous system disorder [Unknown]
  - Vitamin B12 deficiency [Unknown]
  - Eye pain [Unknown]
  - Drug ineffective [Unknown]
  - Overdose [Unknown]
  - Muscle disorder [Unknown]
  - Fibromyalgia [Unknown]
  - Ear disorder [Unknown]
  - Eye disorder [Unknown]
  - Headache [Unknown]
